FAERS Safety Report 5600223-X (Version None)
Quarter: 2008Q1

REPORT INFORMATION
  Report Type: 
  Country: None (occurrence: None)
  Receive Date: 20080117
  Receipt Date: 20080117
  Transmission Date: 20080703
  Serious: No
  Sender: FDA-Public Use
  Company Number: None

PATIENT
  Age: 62 Year
  Sex: Female
  Weight: 73.0291 kg

DRUGS (1)
  1. CYMBALTA [Suspect]
     Indication: DEPRESSION
     Dosage: 60 MG. 1/DAY PO
     Route: 048
     Dates: start: 20060101, end: 20071015

REACTIONS (2)
  - INSOMNIA [None]
  - SUICIDAL IDEATION [None]
